FAERS Safety Report 10098155 (Version 3)
Quarter: 2014Q3

REPORT INFORMATION
  Report Type: Spontaneous
  Country: FR (occurrence: None)
  Receive Date: 20140421
  Receipt Date: 20140820
  Transmission Date: 20150326
  Serious: Yes (Hospitalization, Disabling, Other)
  Sender: FDA-Public Use
  Company Number: 2014MPI00346

PATIENT
  Age: 26 Year
  Sex: Male
  Weight: 80 kg

DRUGS (4)
  1. BRENTUXIMAB VEDOTIN [Suspect]
     Active Substance: BRENTUXIMAB VEDOTIN
     Indication: HODGKIN^S DISEASE
     Route: 042
     Dates: start: 20140320, end: 20140320
  2. ORACILLINE (PHENOXYMETHYLPENICILLIN) [Concomitant]
  3. ISOTRETINOINE [Suspect]
     Active Substance: ISOTRETINOIN
     Indication: ACNE
  4. ZELITREX (VALACICLOVIR HYDROCHLORIDE) (VALACICLOVIR HYDROCHLORIDE) [Concomitant]
     Active Substance: VALACYCLOVIR HYDROCHLORIDE

REACTIONS (17)
  - Amyotrophy [None]
  - Hypothalamo-pituitary disorder [None]
  - Anaemia [None]
  - Central nervous system lesion [None]
  - Acute vestibular syndrome [None]
  - Vomiting [None]
  - Nystagmus [None]
  - Progressive multifocal leukoencephalopathy [None]
  - General physical health deterioration [None]
  - Nausea [None]
  - Quadriplegia [None]
  - Demyelinating polyneuropathy [None]
  - Quadriparesis [None]
  - Dizziness [None]
  - Encephalitis [None]
  - Hyperaesthesia [None]
  - Muscular weakness [None]

NARRATIVE: CASE EVENT DATE: 201403
